FAERS Safety Report 25074318 (Version 1)
Quarter: 2025Q1

REPORT INFORMATION
  Report Type: Spontaneous
  Country: US (occurrence: US)
  Receive Date: 20250313
  Receipt Date: 20250313
  Transmission Date: 20250409
  Serious: Yes (Other)
  Sender: PFIZER
  Company Number: US-PFIZER INC-202500054774

PATIENT
  Age: 60 Year
  Sex: Female

DRUGS (6)
  1. IBRANCE [Suspect]
     Active Substance: PALBOCICLIB
     Route: 048
     Dates: start: 20250303
  2. ATENOLOL [Concomitant]
     Active Substance: ATENOLOL
  3. KISQALI [Concomitant]
     Active Substance: RIBOCICLIB
  4. LETROZOLE [Concomitant]
     Active Substance: LETROZOLE
  5. HYDROCHLOROTHIAZIDE\LOSARTAN [Concomitant]
     Active Substance: HYDROCHLOROTHIAZIDE\LOSARTAN
  6. POTASSIUM [Concomitant]
     Active Substance: POTASSIUM

REACTIONS (1)
  - Renal impairment [Recovering/Resolving]
